FAERS Safety Report 23565840 (Version 1)
Quarter: 2024Q1

REPORT INFORMATION
  Report Type: Spontaneous
  Country: HU (occurrence: HU)
  Receive Date: 20240226
  Receipt Date: 20240226
  Transmission Date: 20240409
  Serious: Yes (Other)
  Sender: FDA-Public Use
  Company Number: HU-002147023-NVSC2024HU027252

PATIENT
  Age: 68 Year
  Sex: Female

DRUGS (2)
  1. LETROZOLE [Suspect]
     Active Substance: LETROZOLE
     Indication: Breast cancer metastatic
     Dosage: UNK (REDUCED DOSE)
     Route: 065
  2. KISQALI [Suspect]
     Active Substance: RIBOCICLIB
     Indication: Breast cancer metastatic
     Dosage: UNK (REDUCED DOSE)
     Route: 065

REACTIONS (2)
  - Malignant neoplasm progression [Unknown]
  - Breast cancer metastatic [Unknown]
